FAERS Safety Report 8081647-0 (Version None)
Quarter: 2012Q1

REPORT INFORMATION
  Report Type: 
  Country: None (occurrence: None)
  Receive Date: 20120130
  Receipt Date: 20120120
  Transmission Date: 20120608
  Serious: Yes (Hospitalization)
  Sender: FDA-Public Use
  Company Number: BR-ASTRAZENECA-2012SE04557

PATIENT
  Age: 73 Year
  Sex: Male
  Weight: 53.1 kg

DRUGS (4)
  1. CRESTOR [Suspect]
     Route: 048
     Dates: start: 20111222
  2. FORMOTEROL FUMARATE [Concomitant]
     Indication: CHRONIC OBSTRUCTIVE PULMONARY DISEASE
  3. SPIRIVA [Concomitant]
     Indication: CHRONIC OBSTRUCTIVE PULMONARY DISEASE
  4. CRESTOR [Suspect]
     Indication: BLOOD CHOLESTEROL INCREASED
     Route: 048
     Dates: end: 20111221

REACTIONS (2)
  - WEIGHT DECREASED [None]
  - CORONARY ARTERY OCCLUSION [None]
